FAERS Safety Report 16559704 (Version 1)
Quarter: 2019Q3

REPORT INFORMATION
  Report Type: Spontaneous
  Country: US (occurrence: US)
  Receive Date: 20190710
  Receipt Date: 20190710
  Transmission Date: 20191004
  Serious: No
  Sender: FDA-Public Use
  Company Number: None

PATIENT
  Age: 71 Year
  Sex: Female
  Weight: 96.75 kg

DRUGS (5)
  1. ROPINEROLE [Suspect]
     Active Substance: ROPINIROLE
     Indication: RESTLESS LEGS SYNDROME
     Dosage: ?          QUANTITY:1 TABLET(S);?
     Route: 048
  2. GABAPENTIN. [Concomitant]
     Active Substance: GABAPENTIN
  3. HYDROCODONE [Concomitant]
     Active Substance: HYDROCODONE
  4. ACETAMIN [Concomitant]
     Active Substance: ACETAMINOPHEN
  5. IRBESARTAN. [Concomitant]
     Active Substance: IRBESARTAN

REACTIONS (6)
  - Restless legs syndrome [None]
  - Hallucination [None]
  - Condition aggravated [None]
  - Gambling disorder [None]
  - Insomnia [None]
  - Sleep deficit [None]

NARRATIVE: CASE EVENT DATE: 20111128
